FAERS Safety Report 15653142 (Version 1)
Quarter: 2018Q4

REPORT INFORMATION
  Report Type: Spontaneous
  Country: US (occurrence: US)
  Receive Date: 20181123
  Receipt Date: 20181123
  Transmission Date: 20190205
  Serious: No
  Sender: FDA-Public Use
  Company Number: US-NOVOPROD-613893

PATIENT
  Sex: Female

DRUGS (1)
  1. NOVOLOG [Suspect]
     Active Substance: INSULIN ASPART
     Indication: GESTATIONAL DIABETES
     Dosage: UNK
     Route: 058
     Dates: start: 20180719

REACTIONS (3)
  - Hypertension [Unknown]
  - Exposure during pregnancy [Unknown]
  - Palpitations [Unknown]

NARRATIVE: CASE EVENT DATE: 20180719
